FAERS Safety Report 8093346-X (Version None)
Quarter: 2012Q1

REPORT INFORMATION
  Report Type: 
  Country: None (occurrence: None)
  Receive Date: 20120128
  Receipt Date: 20111026
  Transmission Date: 20120608
  Serious: No
  Sender: FDA-Public Use
  Company Number: US-ABBOTT-11P-163-0848099-00

PATIENT
  Age: 46 Year
  Sex: Female

DRUGS (16)
  1. LATUDA [Concomitant]
     Indication: ANXIETY
  2. EPINEPHRINE [Concomitant]
     Indication: ARTHROPOD STING
     Dosage: PEN USED AS DIRECTED
  3. SENNA A [Concomitant]
     Indication: CONSTIPATION
     Route: 048
  4. BP MEDICATION [Concomitant]
     Indication: PRODUCT USED FOR UNKNOWN INDICATION
     Dosage: 50 MG PO DAILY
  5. B6 [Concomitant]
     Indication: SUPPLEMENTATION THERAPY
     Route: 048
  6. HUMIRA [Suspect]
     Indication: PSORIASIS
     Dates: start: 20110527
  7. AMITRIPTYLINE HCL [Concomitant]
     Indication: FIBROMYALGIA
  8. LATUDA [Concomitant]
     Indication: BIPOLAR DISORDER
     Route: 048
  9. LISINOPRIL [Concomitant]
     Indication: BLOOD PRESSURE
     Route: 048
  10. TOPROL-XL [Concomitant]
     Indication: BLOOD PRESSURE
     Route: 048
  11. LATUDA [Concomitant]
     Indication: POST-TRAUMATIC STRESS DISORDER
  12. AMITRIPTYLINE HCL [Concomitant]
     Indication: OSTEOARTHRITIS
     Dosage: AT NIGHT
     Route: 048
  13. ZANTAC [Concomitant]
     Indication: PROPHYLAXIS AGAINST GASTROINTESTINAL ULCER
     Route: 048
  14. PROZAC [Concomitant]
     Indication: BIPOLAR II DISORDER
     Route: 048
  15. INH [Concomitant]
     Indication: DRUG THERAPY
     Route: 048
  16. ASPIRIN [Concomitant]
     Indication: CARDIOVASCULAR EVENT PROPHYLAXIS
     Route: 048

REACTIONS (7)
  - MUSCULOSKELETAL PAIN [None]
  - PAIN IN EXTREMITY [None]
  - CONSTIPATION [None]
  - WEIGHT INCREASED [None]
  - PSORIATIC ARTHROPATHY [None]
  - PSORIASIS [None]
  - BACK PAIN [None]
